FAERS Safety Report 8048915-X (Version None)
Quarter: 2012Q1

REPORT INFORMATION
  Report Type: 
  Country: None (occurrence: None)
  Receive Date: 20120117
  Receipt Date: 20120105
  Transmission Date: 20120608
  Serious: Yes (Hospitalization, Other)
  Sender: FDA-Public Use
  Company Number: JP-TEVA-2011002509

PATIENT
  Sex: Female
  Weight: 56 kg

DRUGS (12)
  1. HYDROCORTISONE SODIUM PHOSPHATE [Concomitant]
     Dates: start: 20101214, end: 20110222
  2. RITUXIMAB [Suspect]
     Indication: B-CELL LYMPHOMA
     Dosage: 600 MILLIGRAM;
     Route: 042
     Dates: start: 20101214, end: 20101214
  3. LENOGRASTIM [Concomitant]
     Dates: start: 20110131, end: 20110203
  4. MAGNESIUM OXIDE [Concomitant]
     Dates: start: 20101220, end: 20110308
  5. BENDAMUSTINE [Suspect]
     Dosage: 90 MG/M2;
     Route: 042
     Dates: start: 20110223, end: 20110224
  6. RITUXIMAB [Suspect]
     Dosage: 560 MILLIGRAM;
     Route: 042
     Dates: start: 20110222, end: 20110222
  7. OSELTAMIVIR PHOSPHATE [Concomitant]
  8. BENDAMUSTINE [Suspect]
     Dosage: 90 MG/M2;
     Route: 042
     Dates: start: 20110113, end: 20110114
  9. LOXOPROFEN SODIUM [Concomitant]
     Dates: start: 20101216, end: 20101220
  10. CHLORPHENIRAMINE MALEATE [Concomitant]
  11. BENDAMUSTINE [Suspect]
     Indication: B-CELL LYMPHOMA
     Dosage: 90 MG/M2;
     Route: 042
     Dates: start: 20101215, end: 20101216
  12. RITUXIMAB [Suspect]
     Dosage: 600 MILLIGRAM;
     Route: 042
     Dates: start: 20110112, end: 20110112

REACTIONS (5)
  - FOLLICULITIS [None]
  - WHITE BLOOD CELL COUNT DECREASED [None]
  - NEUTROPHIL COUNT DECREASED [None]
  - DIARRHOEA [None]
  - NAUSEA [None]
